FAERS Safety Report 7995161-1 (Version None)
Quarter: 2011Q4

REPORT INFORMATION
  Report Type: 
  Country: None (occurrence: None)
  Receive Date: 20111220
  Receipt Date: 20111205
  Transmission Date: 20120403
  Serious: Yes (Hospitalization)
  Sender: FDA-Public Use
  Company Number: JP-GLAXOSMITHKLINE-B0767991A

PATIENT
  Sex: Male

DRUGS (4)
  1. DEPAS [Suspect]
     Indication: INSOMNIA
     Dosage: .5MG PER DAY
     Route: 048
     Dates: start: 20111030, end: 20111121
  2. HALCION [Suspect]
     Indication: INSOMNIA
     Dosage: .25MG PER DAY
     Route: 048
     Dates: start: 20111030, end: 20111121
  3. PAXIL [Suspect]
     Indication: DEPRESSION
     Dosage: 30MG PER DAY
     Route: 048
     Dates: start: 20111030, end: 20111121
  4. CHINESE MEDICINE [Suspect]
     Indication: DEPRESSION
     Dosage: 7.5G PER DAY
     Route: 048
     Dates: start: 20111030, end: 20111121

REACTIONS (15)
  - HEPATOMEGALY [None]
  - BLOOD ALKALINE PHOSPHATASE INCREASED [None]
  - BLOOD BILIRUBIN INCREASED [None]
  - BILIRUBIN CONJUGATED INCREASED [None]
  - C-REACTIVE PROTEIN INCREASED [None]
  - GAMMA-GLUTAMYLTRANSFERASE INCREASED [None]
  - BLOOD ALBUMIN DECREASED [None]
  - LIVER DISORDER [None]
  - BLOOD LACTATE DEHYDROGENASE INCREASED [None]
  - ASPARTATE AMINOTRANSFERASE INCREASED [None]
  - ALANINE AMINOTRANSFERASE INCREASED [None]
  - HEPATITIS [None]
  - PYREXIA [None]
  - DECREASED APPETITE [None]
  - PROTEIN TOTAL DECREASED [None]
